FAERS Safety Report 8199949-6 (Version None)
Quarter: 2012Q1

REPORT INFORMATION
  Report Type: 
  Country: None (occurrence: None)
  Receive Date: 20120306
  Receipt Date: 20120223
  Transmission Date: 20120608
  Serious: Yes (Other)
  Sender: FDA-Public Use
  Company Number: ABR_00205_2011

PATIENT
  Sex: Female

DRUGS (2)
  1. ERYTHROMYCIN [Suspect]
     Indication: BRONCHITIS
     Dosage: (3 DOSES (3 DOSES) ORAL), (1 DOSE (1 DOSE) ORAL)
     Route: 048
     Dates: start: 19790101, end: 19790101
  2. ERYTHROMYCIN [Suspect]
     Indication: BRONCHITIS
     Dosage: (3 DOSES (3 DOSES) ORAL), (1 DOSE (1 DOSE) ORAL)
     Route: 048
     Dates: start: 19860101, end: 19860101

REACTIONS (7)
  - PHARYNGEAL OEDEMA [None]
  - DYSPHAGIA [None]
  - DYSPNOEA [None]
  - URTICARIA [None]
  - DRY MOUTH [None]
  - NAUSEA [None]
  - THROAT TIGHTNESS [None]
